FAERS Safety Report 17274140 (Version 4)
Quarter: 2020Q2

REPORT INFORMATION
  Report Type: Spontaneous
  Country: US (occurrence: US)
  Receive Date: 20200115
  Receipt Date: 20200520
  Transmission Date: 20200713
  Serious: Yes (Hospitalization)
  Sender: FDA-Public Use
  Company Number: US-ACTELION-A-NJ2020-200525

PATIENT
  Age: 78 Year
  Sex: Female
  Weight: 92.52 kg

DRUGS (7)
  1. UPTRAVI [Suspect]
     Active Substance: SELEXIPAG
     Dosage: 1000 MCG, BID
     Route: 048
  2. UPTRAVI [Suspect]
     Active Substance: SELEXIPAG
     Dosage: 600 MCG, BID
     Route: 048
  3. UPTRAVI [Suspect]
     Active Substance: SELEXIPAG
     Dosage: 400 MCG, BID
     Route: 048
  4. OXYGEN. [Concomitant]
     Active Substance: OXYGEN
     Route: 055
  5. UPTRAVI [Suspect]
     Active Substance: SELEXIPAG
     Indication: PULMONARY HYPERTENSION
     Dosage: 800 MCG, BID
     Route: 048
  6. ADEMPAS [Concomitant]
     Active Substance: RIOCIGUAT
     Dosage: 1 MG, TID
  7. ELIQUIS [Concomitant]
     Active Substance: APIXABAN

REACTIONS (10)
  - Nasopharyngitis [Unknown]
  - Productive cough [Unknown]
  - Pulmonary hypertension [Unknown]
  - Epistaxis [Unknown]
  - Nasal congestion [Unknown]
  - Sputum discoloured [Unknown]
  - Headache [Unknown]
  - Arthralgia [Unknown]
  - Hypersensitivity [Unknown]
  - Pain in jaw [Unknown]

NARRATIVE: CASE EVENT DATE: 20200118
